FAERS Safety Report 7860844-0 (Version None)
Quarter: 2011Q4

REPORT INFORMATION
  Report Type: 
  Country: None (occurrence: None)
  Receive Date: 20111027
  Receipt Date: 20111017
  Transmission Date: 20120403
  Serious: Yes (Life-Threatening)
  Sender: FDA-Public Use
  Company Number: AU-EISAI INC-E3810-05009-SPO-AU

PATIENT
  Age: 82 Year
  Sex: Female

DRUGS (2)
  1. AZITHROMYCIN [Suspect]
     Route: 042
     Dates: start: 20090307, end: 20090310
  2. RABEPRAZOLE SODIUM [Suspect]
     Route: 048
     Dates: start: 20090228, end: 20090311

REACTIONS (2)
  - FEBRILE NEUTROPENIA [None]
  - AGRANULOCYTOSIS [None]
